FAERS Safety Report 5395405-9 (Version None)
Quarter: 2007Q3

REPORT INFORMATION
  Report Type: 
  Country: None (occurrence: None)
  Receive Date: 20070724
  Receipt Date: 20070712
  Transmission Date: 20080115
  Serious: Yes (Other)
  Sender: FDA-Public Use
  Company Number: US-ROCHE-506922

PATIENT
  Age: 55 Year
  Sex: Male

DRUGS (4)
  1. PEGASYS [Suspect]
     Indication: HEPATITIS C
     Route: 065
  2. PEGASYS [Suspect]
     Route: 065
  3. COPEGUS [Suspect]
     Indication: HEPATITIS C
     Route: 065
  4. COPEGUS [Suspect]
     Route: 065

REACTIONS (4)
  - DISABILITY [None]
  - FATIGUE [None]
  - HEPATITIS C [None]
  - MALAISE [None]
